FAERS Safety Report 6758857-5 (Version None)
Quarter: 2010Q2

REPORT INFORMATION
  Report Type: 
  Country: None (occurrence: None)
  Receive Date: 20100603
  Receipt Date: 20100527
  Transmission Date: 20101027
  Serious: Yes (Hospitalization)
  Sender: FDA-Public Use
  Company Number: 8055292

PATIENT
  Sex: Female
  Weight: 89 kg

DRUGS (15)
  1. CERTOLIZUMAB PEGOL (CERTOLIZUMAB PEGOL) [Suspect]
     Indication: RHEUMATOID ARTHRITIS
     Dosage: 200 MG 1X/2 WEEKS SUBCUTANEOUS, 400 MG 1/X2 WEEK SUBCUTANEOUS
     Route: 058
     Dates: start: 20050829, end: 20060814
  2. CERTOLIZUMAB PEGOL (CERTOLIZUMAB PEGOL) [Suspect]
     Indication: RHEUMATOID ARTHRITIS
     Dosage: 200 MG 1X/2 WEEKS SUBCUTANEOUS, 400 MG 1/X2 WEEK SUBCUTANEOUS
     Route: 058
     Dates: start: 20060828, end: 20091006
  3. METHOTREXATE [Concomitant]
  4. PARACETAMOL [Concomitant]
  5. MELOXICAM [Concomitant]
  6. FOLIC ACID [Concomitant]
  7. TRIMEBUTINE [Concomitant]
  8. ATENOLOL [Concomitant]
  9. OMEPRAZOLE [Concomitant]
  10. BUPROPION HCL [Concomitant]
  11. AMLODIPINE [Concomitant]
  12. DULOXETINE [Concomitant]
  13. LORAZEPAM [Concomitant]
  14. PREDNISONE [Concomitant]
  15. TRAMADOL [Concomitant]

REACTIONS (3)
  - FALL [None]
  - HIP FRACTURE [None]
  - POLYARTHRITIS [None]
